FAERS Safety Report 12547403 (Version 1)
Quarter: 2016Q3

REPORT INFORMATION
  Report Type: Spontaneous
  Country: GB (occurrence: GB)
  Receive Date: 20160711
  Receipt Date: 20160711
  Transmission Date: 20161109
  Serious: Yes (Other)
  Sender: FDA-Public Use
  Company Number: GB-ASTRAZENECA-2016SE72843

PATIENT
  Age: 70 Year
  Sex: Female
  Weight: 65 kg

DRUGS (2)
  1. ATORVASTATIN [Concomitant]
     Active Substance: ATORVASTATIN
     Dates: start: 201604
  2. OMEPRAZOLE. [Suspect]
     Active Substance: OMEPRAZOLE
     Indication: HIATUS HERNIA
     Dosage: 10.0MG UNKNOWN
     Route: 048
     Dates: start: 201601, end: 20160604

REACTIONS (4)
  - Arthralgia [Recovering/Resolving]
  - Myalgia [Recovering/Resolving]
  - Musculoskeletal pain [Recovering/Resolving]
  - Asthenia [Unknown]
